FAERS Safety Report 20592184 (Version 1)
Quarter: 2022Q1

REPORT INFORMATION
  Report Type: Spontaneous
  Country: US (occurrence: None)
  Receive Date: 20220314
  Receipt Date: 20220314
  Transmission Date: 20220423
  Serious: No
  Sender: FDA-Public Use
  Company Number: US-ROCHE-2787805

PATIENT
  Sex: Female

DRUGS (1)
  1. XOLAIR [Suspect]
     Active Substance: OMALIZUMAB
     Indication: Idiopathic urticaria
     Dosage: ROUTE: CUTANEOUS - ON THE SKIN
     Route: 003
     Dates: start: 20200210, end: 20210202

REACTIONS (1)
  - Paraesthesia [Recovered/Resolved]
